FAERS Safety Report 15072551 (Version 2)
Quarter: 2018Q3

REPORT INFORMATION
  Report Type: Spontaneous
  Country: US (occurrence: US)
  Receive Date: 20180627
  Receipt Date: 20180705
  Transmission Date: 20181010
  Serious: No
  Sender: FDA-Public Use
  Company Number: US-SHIRE-US201822526

PATIENT
  Age: 66 Year
  Sex: Female
  Weight: 66.35 kg

DRUGS (1)
  1. CUVITRU [Suspect]
     Active Substance: HUMAN IMMUNOGLOBULIN G
     Indication: PRODUCT USED FOR UNKNOWN INDICATION
     Dosage: 10 G, 1X/WEEK
     Route: 058
     Dates: start: 20180613

REACTIONS (4)
  - Underdose [Recovered/Resolved]
  - Fall [Recovering/Resolving]
  - Musculoskeletal discomfort [Unknown]
  - Head injury [Unknown]

NARRATIVE: CASE EVENT DATE: 20180616
